FAERS Safety Report 21673975 (Version 3)
Quarter: 2023Q1

REPORT INFORMATION
  Report Type: Spontaneous
  Country: US (occurrence: US)
  Receive Date: 20221202
  Receipt Date: 20230106
  Transmission Date: 20230418
  Serious: Yes (Hospitalization)
  Sender: FDA-Public Use
  Company Number: US-BEH-2022152617

PATIENT
  Age: 60 Year
  Sex: Female

DRUGS (22)
  1. HIZENTRA [Suspect]
     Active Substance: HUMAN IMMUNOGLOBULIN G
     Indication: Asthma
     Dosage: 10 GRAM, QW
     Route: 058
     Dates: start: 20210209
  2. HIZENTRA [Suspect]
     Active Substance: HUMAN IMMUNOGLOBULIN G
     Indication: Immunodeficiency common variable
     Dosage: 12 GRAM, QW
     Route: 058
     Dates: start: 20210209
  3. HIZENTRA [Suspect]
     Active Substance: HUMAN IMMUNOGLOBULIN G
     Dosage: UNK
     Route: 058
  4. ACYCLOVIR [Concomitant]
     Active Substance: ACYCLOVIR
     Dosage: UNK
  5. ALBUTEROL SULFATE [Concomitant]
     Active Substance: ALBUTEROL SULFATE
  6. AMITRIPTYLINE HYDROCHLORIDE [Concomitant]
     Active Substance: AMITRIPTYLINE HYDROCHLORIDE
  7. AZITHROMYCIN [Concomitant]
     Active Substance: AZITHROMYCIN
  8. BREO ELLIPTA [Concomitant]
     Active Substance: FLUTICASONE FUROATE\VILANTEROL TRIFENATATE
  9. DUPILUMAB [Concomitant]
     Active Substance: DUPILUMAB
  10. EPINEPHRINE [Concomitant]
     Active Substance: EPINEPHRINE
  11. GABAPENTIN [Concomitant]
     Active Substance: GABAPENTIN
  12. METHOCARBAMOL [Concomitant]
     Active Substance: METHOCARBAMOL
  13. ONDANSETRON [Concomitant]
     Active Substance: ONDANSETRON
  14. PREDNISONE [Concomitant]
     Active Substance: PREDNISONE
  15. RIZATRIPTAN [Concomitant]
     Active Substance: RIZATRIPTAN
  16. ROSUVASTATIN [Concomitant]
     Active Substance: ROSUVASTATIN
  17. SUMATRIPTAN [Concomitant]
     Active Substance: SUMATRIPTAN
  18. XIIDRA [Concomitant]
     Active Substance: LIFITEGRAST
  19. ZOLPIDEM [Concomitant]
     Active Substance: ZOLPIDEM TARTRATE
  20. AIMOVIG [Concomitant]
     Active Substance: ERENUMAB-AOOE
  21. DUPIXENT [Concomitant]
     Active Substance: DUPILUMAB
  22. NURTEC ODT [Concomitant]
     Active Substance: RIMEGEPANT SULFATE

REACTIONS (5)
  - Dyspnoea [Unknown]
  - No adverse event [Unknown]
  - Off label use [Unknown]
  - Blood pressure abnormal [Not Recovered/Not Resolved]
  - Tracheostomy malfunction [Not Recovered/Not Resolved]

NARRATIVE: CASE EVENT DATE: 20221220
